FAERS Safety Report 14899986 (Version 1)
Quarter: 2018Q2

REPORT INFORMATION
  Report Type: Other
  Country: CA (occurrence: CA)
  Receive Date: 20180516
  Receipt Date: 20180516
  Transmission Date: 20180711
  Serious: Yes (Life-Threatening)
  Sender: FDA-Public Use
  Company Number: CA-APOTEX-2018AP013224

PATIENT
  Age: 83 Year
  Sex: Male
  Weight: 65 kg

DRUGS (2)
  1. LEVODOPA [Concomitant]
     Active Substance: LEVODOPA
     Indication: PRODUCT USED FOR UNKNOWN INDICATION
     Route: 065
  2. LEVOFLOXACIN. [Suspect]
     Active Substance: LEVOFLOXACIN
     Indication: INFECTION
     Route: 065

REACTIONS (8)
  - Hallucination [Recovered/Resolved]
  - Agitation [Recovered/Resolved]
  - Nightmare [Recovered/Resolved]
  - Fall [Recovered/Resolved]
  - Speech disorder [Recovered/Resolved]
  - Insomnia [Recovered/Resolved]
  - Impulse-control disorder [Recovered/Resolved]
  - Confusional state [Recovered/Resolved]
